FAERS Safety Report 5121622-9 (Version None)
Quarter: 2006Q4

REPORT INFORMATION
  Report Type: 
  Country: None (occurrence: None)
  Receive Date: 20061006
  Receipt Date: 20060927
  Transmission Date: 20070319
  Serious: Yes (Hospitalization)
  Sender: FDA-Public Use
  Company Number: US-AVENTIS-200618137US

PATIENT
  Sex: Female
  Weight: 57 kg

DRUGS (1)
  1. KETEK [Suspect]
     Indication: EAR INFECTION
     Route: 048
     Dates: start: 20060823, end: 20060826

REACTIONS (9)
  - ABSCESS DRAINAGE [None]
  - AURICULAR SWELLING [None]
  - CONDITION AGGRAVATED [None]
  - EAR DISORDER [None]
  - EAR INFECTION [None]
  - EAR PAIN [None]
  - ERYTHEMA [None]
  - EXTERNAL EAR CELLULITIS [None]
  - SCREAMING [None]
